FAERS Safety Report 6400115-2 (Version None)
Quarter: 2009Q4

REPORT INFORMATION
  Report Type: 
  Country: None (occurrence: None)
  Receive Date: 20091014
  Receipt Date: 20091009
  Transmission Date: 20100525
  Serious: Yes (Disabling)
  Sender: FDA-Public Use
  Company Number: US-CVT-090512

PATIENT

DRUGS (15)
  1. RANEXA [Suspect]
     Indication: ANGINA PECTORIS
     Dosage: 500 MG, QD
     Route: 048
     Dates: start: 20080825, end: 20080829
  2. RANEXA [Suspect]
     Dosage: 1000 MG, BID
     Route: 048
     Dates: start: 20080829, end: 20090807
  3. RANEXA [Suspect]
     Dosage: 500 MG, BID
     Route: 048
     Dates: start: 20090812
  4. COREG [Concomitant]
     Dosage: 6.25 MG, BID
  5. ALLOPURINOL [Concomitant]
     Dosage: 100 MG, QD
  6. SYNTHROID [Concomitant]
     Dosage: 100 MG, QD
  7. COZAAR [Concomitant]
     Dosage: 12.5 MG, QD
  8. COUMADIN [Concomitant]
  9. ASPIRIN [Concomitant]
     Dosage: 81 MG, QD
  10. AMIODARONE                         /00133101/ [Concomitant]
     Dosage: 100 MG, QD
  11. FISH OIL [Concomitant]
     Dosage: 3600 MG, BID
  12. NOVOLOG [Concomitant]
  13. LANTUS [Concomitant]
     Dosage: 10 UNITS, UNK
  14. ADVAIR DISKUS 100/50 [Concomitant]
     Dosage: 1 PUFF, BID
  15. PROVENTIL                          /00139501/ [Concomitant]

REACTIONS (1)
  - NEUROPATHY PERIPHERAL [None]
